FAERS Safety Report 7710651-4 (Version None)
Quarter: 2011Q3

REPORT INFORMATION
  Report Type: 
  Country: None (occurrence: None)
  Receive Date: 20110825
  Receipt Date: 20110823
  Transmission Date: 20111222
  Serious: No
  Sender: FDA-Public Use
  Company Number: US-PFIZER INC-2011196401

PATIENT
  Age: 93 Year
  Sex: Female
  Weight: 90.703 kg

DRUGS (4)
  1. LISINOPRIL [Concomitant]
     Dosage: 5 MG, DAILY
  2. COUMADIN [Concomitant]
     Dosage: 5 MG, DAILY
  3. CELEBREX [Suspect]
     Indication: ARTHRITIS
     Dosage: 200 MG, 2X/DAY
     Route: 048
     Dates: start: 20090701
  4. LIPITOR [Concomitant]
     Dosage: 10 MG, DAILY

REACTIONS (2)
  - DRUG DOSE OMISSION [None]
  - DRUG INEFFECTIVE [None]
